FAERS Safety Report 12499102 (Version 1)
Quarter: 2016Q2

REPORT INFORMATION
  Report Type: Spontaneous
  Country: US (occurrence: None)
  Receive Date: 20160624
  Receipt Date: 20160624
  Transmission Date: 20160815
  Serious: Yes (Other)
  Sender: FDA-Public Use
  Company Number: None

PATIENT
  Age: 44 Year
  Sex: Female
  Weight: 77.11 kg

DRUGS (12)
  1. VALIUM [Concomitant]
     Active Substance: DIAZEPAM
  2. ZOFRAN [Concomitant]
     Active Substance: ONDANSETRON HYDROCHLORIDE
  3. RIBOFLAVIN [Concomitant]
     Active Substance: RIBOFLAVIN
  4. MECLAZINE 25 MG, 25 MG [Suspect]
     Active Substance: MECLIZINE HYDROCHLORIDE
     Indication: MIGRAINE
     Route: 048
  5. TIAZADINE [Concomitant]
  6. NEWSMAGAZINE [Concomitant]
  7. BACLOFIN [Concomitant]
  8. NORTRIPTYLINE [Concomitant]
     Active Substance: NORTRIPTYLINE
  9. MAGNESIUM [Concomitant]
     Active Substance: MAGNESIUM
  10. PHENERGAN [Concomitant]
     Active Substance: PROMETHAZINE HYDROCHLORIDE
  11. ZYRTEK [Concomitant]
     Active Substance: CETIRIZINE HYDROCHLORIDE
  12. MULTI VITAMIN [Concomitant]
     Active Substance: VITAMINS

REACTIONS (2)
  - Loss of consciousness [None]
  - Hallucinations, mixed [None]

NARRATIVE: CASE EVENT DATE: 20160311
